FAERS Safety Report 8789535 (Version 1)
Quarter: 2012Q4

REPORT INFORMATION
  Report Type: Spontaneous
  Country: US (occurrence: None)
  Receive Date: 20120910
  Receipt Date: 20120910
  Transmission Date: 20130627
  Serious: Yes (Disabling)
  Sender: FDA-Public Use
  Company Number: None

PATIENT
  Age: 63 Year
  Sex: Female

DRUGS (2)
  1. LEVAQUIN [Suspect]
     Indication: VIRAL INFECTION
     Dates: start: 20100106, end: 20100109
  2. AVONEX [Suspect]

REACTIONS (11)
  - Tendon rupture [None]
  - Neuropathy peripheral [None]
  - Rotator cuff syndrome [None]
  - Retinal disorder [None]
  - Eye disorder [None]
  - Photopsia [None]
  - Vitreous floaters [None]
  - Tendonitis [None]
  - Night sweats [None]
  - Insomnia [None]
  - Nightmare [None]
